FAERS Safety Report 4878818-0 (Version None)
Quarter: 2006Q1

REPORT INFORMATION
  Report Type: 
  Country: None (occurrence: None)
  Receive Date: 20060112
  Receipt Date: 20051114
  Transmission Date: 20060701
  Serious: Yes (Disabling)
  Sender: FDA-Public Use
  Company Number: US-GLAXOSMITHKLINE-A0582208A

PATIENT
  Age: 18 Year
  Sex: Female

DRUGS (2)
  1. LOTRONEX [Suspect]
     Indication: IRRITABLE BOWEL SYNDROME
     Route: 048
  2. NO CONCURRENT MEDICATION [Concomitant]

REACTIONS (4)
  - BLINDNESS UNILATERAL [None]
  - BLOOD HOMOCYSTEINE INCREASED [None]
  - CARDIOLIPIN ANTIBODY POSITIVE [None]
  - RETINAL ARTERY THROMBOSIS [None]
